FAERS Safety Report 20943122 (Version 1)
Quarter: 2022Q2

REPORT INFORMATION
  Report Type: Spontaneous
  Country: US (occurrence: US)
  Receive Date: 20220610
  Receipt Date: 20220610
  Transmission Date: 20220720
  Serious: No
  Sender: FDA-Public Use
  Company Number: US-009507513-2206USA002727

PATIENT
  Age: 59 Year
  Sex: Female
  Weight: 54.422 kg

DRUGS (11)
  1. KEYTRUDA [Suspect]
     Active Substance: PEMBROLIZUMAB
  2. LENVATINIB MESYLATE [Suspect]
     Active Substance: LENVATINIB MESYLATE
     Indication: Hepatocellular carcinoma
     Dosage: 8 MILLIGRAM, DAILY
     Route: 048
     Dates: start: 20220301, end: 2022
  3. IMODIUM [Suspect]
     Active Substance: LOPERAMIDE HYDROCHLORIDE
     Indication: Diarrhoea
  4. DIAZEPAM [Concomitant]
     Active Substance: DIAZEPAM
  5. EUTHYROX [Concomitant]
     Active Substance: LEVOTHYROXINE SODIUM
  6. GLUCOSAMINE [Concomitant]
     Active Substance: GLUCOSAMINE
  7. IBUPROFEN [Concomitant]
     Active Substance: IBUPROFEN
  8. IRON [Concomitant]
     Active Substance: IRON
  9. VITAMINS [Concomitant]
     Active Substance: VITAMINS
  10. 3 OMEGAS [Concomitant]
  11. VITAMINA B12 [Concomitant]

REACTIONS (3)
  - Drug ineffective [Unknown]
  - Blood pressure increased [Not Recovered/Not Resolved]
  - Diarrhoea [Not Recovered/Not Resolved]

NARRATIVE: CASE EVENT DATE: 20220531
